FAERS Safety Report 24211288 (Version 1)
Quarter: 2024Q3

REPORT INFORMATION
  Report Type: Spontaneous
  Country: US (occurrence: None)
  Receive Date: 20240813
  Receipt Date: 20240813
  Transmission Date: 20241017
  Serious: No
  Sender: Public
  Company Number: None

PATIENT
  Age: 67 Year
  Sex: Male
  Weight: 104 kg

DRUGS (2)
  1. KETAMINE HYDROCHLORIDE [Suspect]
     Active Substance: KETAMINE HYDROCHLORIDE
     Indication: Sedative therapy
     Dosage: OTHER FREQUENCY : ONE TIME;?
     Route: 040
     Dates: start: 20240731, end: 20240731
  2. KETAMINE [Concomitant]
     Active Substance: KETAMINE
     Dates: start: 20240731, end: 20240731

REACTIONS (1)
  - Laryngospasm [None]

NARRATIVE: CASE EVENT DATE: 20240731
